FAERS Safety Report 8521397-7 (Version None)
Quarter: 2012Q3

REPORT INFORMATION
  Report Type: 
  Country: None (occurrence: None)
  Receive Date: 20120712
  Receipt Date: 20120712
  Transmission Date: 20120928
  Serious: Yes (Hospitalization)
  Sender: FDA-Public Use
  Company Number: None

PATIENT
  Age: 85 Year
  Sex: Male
  Weight: 90.2 kg

DRUGS (2)
  1. WARFARIN SODIUM [Suspect]
     Indication: DEEP VEIN THROMBOSIS
     Dates: start: 20120703, end: 20120710
  2. ENOXAPARIN [Suspect]
     Indication: DEEP VEIN THROMBOSIS
     Dates: start: 20120703, end: 20120710

REACTIONS (1)
  - GASTRIC HAEMORRHAGE [None]
